FAERS Safety Report 15932870 (Version 1)
Quarter: 2019Q1

REPORT INFORMATION
  Report Type: Spontaneous
  Country: US (occurrence: US)
  Receive Date: 20190207
  Receipt Date: 20190207
  Transmission Date: 20190417
  Serious: No
  Sender: FDA-Public Use
  Company Number: US-AMGEN-USASP2019018395

PATIENT

DRUGS (2)
  1. TROKENDI [Concomitant]
     Active Substance: TOPIRAMATE
     Indication: HEADACHE
     Dosage: 300 MG, QD
  2. AIMOVIG [Suspect]
     Active Substance: ERENUMAB-AOOE
     Indication: HEADACHE
     Dosage: UNK
     Route: 065

REACTIONS (3)
  - Drug effect incomplete [Unknown]
  - Muscle spasms [Unknown]
  - Arthralgia [Unknown]
